FAERS Safety Report 5498904-4 (Version None)
Quarter: 2007Q4

REPORT INFORMATION
  Report Type: 
  Country: None (occurrence: None)
  Receive Date: 20071026
  Receipt Date: 20070803
  Transmission Date: 20080405
  Serious: No
  Sender: FDA-Public Use
  Company Number: A0668124A

PATIENT
  Age: 52 Year
  Sex: Female

DRUGS (4)
  1. ADVAIR DISKUS 100/50 [Suspect]
     Indication: ASTHMA
     Route: 055
  2. PREVACID [Concomitant]
  3. ATIVAN [Concomitant]
  4. VITAMINS [Concomitant]

REACTIONS (1)
  - DRUG INEFFECTIVE [None]
